FAERS Safety Report 23627036 (Version 2)
Quarter: 2024Q1

REPORT INFORMATION
  Report Type: Spontaneous
  Country: US (occurrence: US)
  Receive Date: 20240313
  Receipt Date: 20240314
  Transmission Date: 20240409
  Serious: No
  Sender: FDA-Public Use
  Company Number: US-PFIZER INC-202400062521

PATIENT
  Age: 82 Year
  Sex: Female
  Weight: 86.18 kg

DRUGS (1)
  1. IBRANCE [Suspect]
     Active Substance: PALBOCICLIB
     Indication: Pelvic neoplasm
     Dosage: 100MG FOR THREE WEEKS AND ONE WEEK OFF ONCE A DAY SWALLOW WITH WATER
     Route: 048
     Dates: start: 202401

REACTIONS (4)
  - Oral pain [Unknown]
  - Toothache [Not Recovered/Not Resolved]
  - Swelling face [Unknown]
  - Off label use [Unknown]

NARRATIVE: CASE EVENT DATE: 20240101
